FAERS Safety Report 8418728-5 (Version None)
Quarter: 2012Q2

REPORT INFORMATION
  Report Type: 
  Country: None (occurrence: None)
  Receive Date: 20120607
  Receipt Date: 20120524
  Transmission Date: 20120825
  Serious: No
  Sender: FDA-Public Use
  Company Number: US-BAYER-2012-055887

PATIENT
  Age: 60 Year
  Sex: Female

DRUGS (5)
  1. ESCITALOPRAM [Concomitant]
     Dosage: UNK
     Route: 048
     Dates: start: 20120524
  2. ADVANTAGE II SMALL CAT (IMIDACLOPRID-PYRIPROXYFEN) [Concomitant]
  3. ALEVE (CAPLET) [Suspect]
     Dosage: UNK
     Route: 048
     Dates: start: 20120524
  4. TRAZODONE HCL [Concomitant]
     Dosage: UNK
     Route: 048
     Dates: start: 20120524
  5. CARISOPRODOL [Concomitant]
     Dosage: UNK
     Route: 048
     Dates: start: 20120524

REACTIONS (2)
  - VOMITING [None]
  - NAUSEA [None]
